FAERS Safety Report 21467482 (Version 1)
Quarter: 2022Q4

REPORT INFORMATION
  Report Type: Spontaneous
  Country: CN (occurrence: None)
  Receive Date: 20221017
  Receipt Date: 20221017
  Transmission Date: 20230113
  Serious: Yes (Hospitalization)
  Sender: FDA-Public Use
  Company Number: CN-Eisai Medical Research-EC-2022-125487

PATIENT
  Age: 45 Year
  Sex: Male
  Weight: 69 kg

DRUGS (1)
  1. LENVIMA [Suspect]
     Active Substance: LENVATINIB
     Indication: Hepatic cancer
     Route: 048
     Dates: start: 20220526, end: 20220914

REACTIONS (4)
  - Abdominal distension [Unknown]
  - Decreased appetite [Unknown]
  - Oedema peripheral [Recovering/Resolving]
  - Blood albumin decreased [Unknown]

NARRATIVE: CASE EVENT DATE: 20220904
